FAERS Safety Report 7297329-9 (Version None)
Quarter: 2011Q1

REPORT INFORMATION
  Report Type: 
  Country: None (occurrence: None)
  Receive Date: 20110216
  Receipt Date: 20110209
  Transmission Date: 20110831
  Serious: Yes (Other)
  Sender: FDA-Public Use
  Company Number: SG-BAXTER-2011BH003519

PATIENT
  Age: 20 Year
  Sex: Female

DRUGS (10)
  1. PROCARBAZINE [Concomitant]
     Indication: LUPUS NEPHRITIS
     Route: 065
  2. CYTARABINE [Concomitant]
     Indication: LUPUS NEPHRITIS
     Route: 065
  3. BUSULFAN [Suspect]
     Indication: SYSTEMIC LUPUS ERYTHEMATOSUS
     Route: 065
  4. RITUXIMAB [Concomitant]
     Indication: LUPUS NEPHRITIS
     Route: 065
  5. CYCLOPHOSPHAMIDE [Suspect]
     Indication: SYSTEMIC LUPUS ERYTHEMATOSUS
     Route: 065
  6. METHOTREXATE [Concomitant]
     Indication: LUPUS NEPHRITIS
     Route: 065
  7. VINCRISTINE [Concomitant]
     Indication: LUPUS NEPHRITIS
     Route: 065
  8. THIOTEPA [Suspect]
     Indication: SYSTEMIC LUPUS ERYTHEMATOSUS
     Route: 065
  9. ETOPOSIDE [Concomitant]
     Indication: LUPUS NEPHRITIS
     Route: 065
  10. MYCOPHENOLATE MOFETIL [Concomitant]
     Indication: LUPUS NEPHRITIS
     Route: 065

REACTIONS (8)
  - CANDIDIASIS [None]
  - POSTERIOR REVERSIBLE ENCEPHALOPATHY SYNDROME [None]
  - HAEMATURIA [None]
  - HYPERTENSION [None]
  - NEOPLASM MALIGNANT [None]
  - CENTRAL NERVOUS SYSTEM LYMPHOMA [None]
  - FUNGAEMIA [None]
  - STEVENS-JOHNSON SYNDROME [None]
